FAERS Safety Report 18774441 (Version 2)
Quarter: 2021Q4

REPORT INFORMATION
  Report Type: Spontaneous
  Country: FR (occurrence: FR)
  Receive Date: 20210122
  Receipt Date: 20211026
  Transmission Date: 20220303
  Serious: Yes (Hospitalization)
  Sender: FDA-Public Use
  Company Number: FR-SUN PHARMACEUTICAL INDUSTRIES LTD-2021RR-277308

PATIENT
  Age: 56 Year
  Sex: Male
  Weight: 64.6 kg

DRUGS (11)
  1. ALLOPURINOL [Suspect]
     Active Substance: ALLOPURINOL
     Indication: Gout
     Dosage: 100 GRAM, DAILY
     Route: 048
     Dates: start: 202010, end: 20201219
  2. COLCHICINE\OPIUM\TIEMONIUM METHYLSULFATE [Suspect]
     Active Substance: COLCHICINE\OPIUM\TIEMONIUM METHYLSULFATE
     Indication: Gout
     Dosage: 0.5 DOSAGE FORM, DAILY
     Route: 048
     Dates: start: 202010, end: 20201219
  3. CELLCEPT [Suspect]
     Active Substance: MYCOPHENOLATE MOFETIL\MYCOPHENOLATE MOFETIL HYDROCHLORIDE
     Indication: Renal transplant
     Dosage: 2 GRAM, DAILY
     Route: 048
     Dates: start: 2009, end: 20201219
  4. ALDACTAZINE [Suspect]
     Active Substance: ALTHIAZIDE\SPIRONOLACTONE
     Indication: Product used for unknown indication
     Dosage: 1 DOSAGE FORM, DAILY
     Route: 048
     Dates: end: 20201219
  5. PROGRAF [Concomitant]
     Active Substance: TACROLIMUS
     Indication: Product used for unknown indication
     Dosage: UNK
     Route: 065
  6. FOLIC ACID [Concomitant]
     Active Substance: FOLIC ACID
     Indication: Product used for unknown indication
     Dosage: UNK
     Route: 065
  7. FUROSEMIDE [Concomitant]
     Active Substance: FUROSEMIDE
     Indication: Product used for unknown indication
     Dosage: UNK
     Route: 065
  8. SOLUPRED [Concomitant]
     Indication: Product used for unknown indication
     Dosage: UNK
     Route: 065
  9. VIAGRA [Concomitant]
     Active Substance: SILDENAFIL CITRATE
     Indication: Product used for unknown indication
     Dosage: UNK
     Route: 065
  10. INIPOMP [Concomitant]
     Active Substance: PANTOPRAZOLE SODIUM
     Indication: Product used for unknown indication
     Dosage: UNK
     Route: 065
  11. TWYNSTA [Concomitant]
     Active Substance: AMLODIPINE BESYLATE\TELMISARTAN
     Indication: Product used for unknown indication
     Dosage: UNK
     Route: 065

REACTIONS (1)
  - Neutropenia [Recovered/Resolved]

NARRATIVE: CASE EVENT DATE: 20201101
